FAERS Safety Report 4970725-8 (Version None)
Quarter: 2006Q2

REPORT INFORMATION
  Report Type: 
  Country: None (occurrence: None)
  Receive Date: 20060411
  Receipt Date: 20060411
  Transmission Date: 20061013
  Serious: Yes (Hospitalization)
  Sender: FDA-Public Use
  Company Number: None

PATIENT
  Age: 61 Year
  Sex: Male
  Weight: 73.5 kg

DRUGS (2)
  1. TYLENOL W/ CODEINE NO. 3 [Suspect]
     Indication: FOOT OPERATION
     Dosage: 2 Q4 HPRN, 2 Q 4 HPRN, ORAL
     Route: 048
     Dates: start: 20060328, end: 20060328
  2. TYLENOL W/ CODEINE NO. 3 [Suspect]
     Indication: POSTOPERATIVE ANALGESIA
     Dosage: 2 Q4 HPRN, 2 Q 4 HPRN, ORAL
     Route: 048
     Dates: start: 20060328, end: 20060328

REACTIONS (1)
  - RASH [None]
